FAERS Safety Report 8462439-7 (Version None)
Quarter: 2012Q2

REPORT INFORMATION
  Report Type: 
  Country: None (occurrence: None)
  Receive Date: 20120625
  Receipt Date: 20120619
  Transmission Date: 20120825
  Serious: No
  Sender: FDA-Public Use
  Company Number: US-PFIZER INC-2012148982

PATIENT
  Age: 50 Year
  Sex: Male
  Weight: 91 kg

DRUGS (3)
  1. LYRICA [Suspect]
     Indication: NEURALGIA
     Dosage: 75 MG, UNK
     Route: 048
  2. METHOTREXATE [Concomitant]
     Dosage: UNK
  3. ETANERCEPT [Concomitant]
     Dosage: UNK

REACTIONS (4)
  - ANXIETY [None]
  - FRUSTRATION [None]
  - MOOD ALTERED [None]
  - AGITATION [None]
